FAERS Safety Report 9337760 (Version 1)
Quarter: 2013Q2

REPORT INFORMATION
  Report Type: Spontaneous
  Country: JP (occurrence: JP)
  Receive Date: 20130607
  Receipt Date: 20130607
  Transmission Date: 20140414
  Serious: Yes (Other)
  Sender: FDA-Public Use
  Company Number: JP-BAXTER-2013BAX021008

PATIENT
  Age: 28 Year
  Sex: Male

DRUGS (14)
  1. ENDOXAN [Suspect]
     Indication: ACUTE LYMPHOCYTIC LEUKAEMIA
     Route: 065
  2. ENDOXAN [Suspect]
     Indication: BONE MARROW CONDITIONING REGIMEN
     Route: 065
  3. CELLTOP_ETOPOSIDE 20.00 MG/ML_SOLUTION FOR INJECTION_VIAL, GLASS [Suspect]
     Indication: BONE MARROW CONDITIONING REGIMEN
     Route: 065
  4. PREDNISOLONE [Suspect]
     Indication: ACUTE LYMPHOCYTIC LEUKAEMIA
     Route: 065
  5. PREDNISOLONE [Suspect]
     Indication: GRAFT VERSUS HOST DISEASE
     Route: 065
  6. FLUCONAZOLE [Suspect]
     Indication: ACUTE LYMPHOCYTIC LEUKAEMIA
  7. FILDESIN [Suspect]
     Indication: ACUTE LYMPHOCYTIC LEUKAEMIA
     Route: 065
  8. MITOXANTRONE [Suspect]
     Indication: ACUTE LYMPHOCYTIC LEUKAEMIA
  9. CYTARABINE [Suspect]
     Indication: ACUTE LYMPHOCYTIC LEUKAEMIA
     Route: 065
  10. METHOTREXATE [Suspect]
     Indication: ACUTE LYMPHOCYTIC LEUKAEMIA
     Route: 065
  11. MICAFUNGIN [Suspect]
     Indication: IMMUNOSUPPRESSION
     Route: 065
  12. VORICONAZOLE [Suspect]
     Indication: IMMUNOSUPPRESSION
     Route: 065
  13. TACROLIMUS HYDRATE [Concomitant]
     Indication: IMMUNOSUPPRESSION
     Route: 065
  14. TACROLIMUS HYDRATE [Concomitant]
     Indication: PROPHYLAXIS

REACTIONS (4)
  - Zygomycosis [Recovered/Resolved]
  - Pyrexia [Unknown]
  - Hyperglycaemia [Unknown]
  - Pancreatitis [Unknown]
